FAERS Safety Report 4460911-8 (Version None)
Quarter: 2004Q3

REPORT INFORMATION
  Report Type: 
  Country: None (occurrence: None)
  Receive Date: 20040928
  Receipt Date: 20040610
  Transmission Date: 20050211
  Serious: No
  Sender: FDA-Public Use
  Company Number: US-GLAXOSMITHKLINE-A0514127A

PATIENT
  Sex: Female

DRUGS (2)
  1. ADVAIR DISKUS 100/50 [Suspect]
     Indication: EMPHYSEMA
     Dosage: 1PUFF TWICE PER DAY
     Route: 055
  2. NO CONCURRENT MEDICATION [Concomitant]

REACTIONS (9)
  - CONTUSION [None]
  - DRY MOUTH [None]
  - GASTRIC DISORDER [None]
  - HOARSENESS [None]
  - INSOMNIA [None]
  - MUSCLE CRAMP [None]
  - ORAL CANDIDIASIS [None]
  - ORAL SOFT TISSUE DISORDER [None]
  - WEIGHT INCREASED [None]
